FAERS Safety Report 19422695 (Version 1)
Quarter: 2021Q2

REPORT INFORMATION
  Report Type: Spontaneous
  Country: US (occurrence: US)
  Receive Date: 20210616
  Receipt Date: 20210616
  Transmission Date: 20210717
  Serious: Yes (Other)
  Sender: FDA-Public Use
  Company Number: US-GLAXOSMITHKLINE-US2021GSK130793

PATIENT
  Sex: Female

DRUGS (5)
  1. RANITIDINE. [Suspect]
     Active Substance: RANITIDINE
     Dosage: UNK UNK, WE
     Route: 065
     Dates: start: 199901, end: 201506
  2. RANITIDINE CAPSULE [Suspect]
     Active Substance: RANITIDINE
     Dosage: UNK UNK, WE
     Route: 065
     Dates: start: 199403, end: 201506
  3. ZANTAC [Suspect]
     Active Substance: RANITIDINE HYDROCHLORIDE
     Dosage: UNK UNK, WE
     Route: 065
     Dates: start: 199403, end: 201506
  4. RANITIDINE. [Suspect]
     Active Substance: RANITIDINE
     Dosage: UNK, WE
     Route: 065
     Dates: start: 199901, end: 201506
  5. ZANTAC [Suspect]
     Active Substance: RANITIDINE HYDROCHLORIDE
     Dosage: UNK UNK, WE
     Route: 065
     Dates: start: 199403, end: 201506

REACTIONS (1)
  - Breast cancer [Unknown]
